FAERS Safety Report 24708017 (Version 1)
Quarter: 2024Q4

REPORT INFORMATION
  Report Type: Spontaneous
  Country: US (occurrence: US)
  Receive Date: 20241206
  Receipt Date: 20241206
  Transmission Date: 20250115
  Serious: No
  Sender: SANOFI AVENTIS
  Company Number: US-SA-2024SA355696

PATIENT
  Age: 22 Year
  Sex: Male

DRUGS (1)
  1. DUPIXENT [Suspect]
     Active Substance: DUPILUMAB
     Indication: Dermatitis atopic
     Dosage: 600 MG, 1X
     Route: 058
     Dates: start: 20241125, end: 20241125

REACTIONS (7)
  - Paraesthesia [Recovered/Resolved]
  - Urticaria [Recovered/Resolved]
  - Rash [Recovered/Resolved]
  - Injection site swelling [Recovered/Resolved]
  - Conjunctivitis [Unknown]
  - Dry eye [Unknown]
  - Arthralgia [Unknown]

NARRATIVE: CASE EVENT DATE: 20241101
